FAERS Safety Report 13949675 (Version 1)
Quarter: 2017Q3

REPORT INFORMATION
  Report Type: Spontaneous
  Country: US (occurrence: US)
  Receive Date: 20170908
  Receipt Date: 20170908
  Transmission Date: 20171128
  Serious: No
  Sender: FDA-Public Use
  Company Number: US-ROCHE-1143244

PATIENT
  Sex: Male
  Weight: 163 kg

DRUGS (2)
  1. RITUXAN [Suspect]
     Active Substance: RITUXIMAB
     Indication: LYMPHOMA
     Route: 065
     Dates: start: 20000417
  2. RITUXAN [Suspect]
     Active Substance: RITUXIMAB
     Route: 065

REACTIONS (6)
  - Injection site reaction [Unknown]
  - Feeling hot [Unknown]
  - Urticaria [Unknown]
  - Pruritus [Unknown]
  - Chest discomfort [Unknown]
  - Dizziness [Unknown]
